FAERS Safety Report 4886685-4 (Version None)
Quarter: 2006Q1

REPORT INFORMATION
  Report Type: 
  Country: None (occurrence: None)
  Receive Date: 20060119
  Receipt Date: 20051215
  Transmission Date: 20060701
  Serious: Yes (Hospitalization)
  Sender: FDA-Public Use
  Company Number: 220464

PATIENT
  Age: 42 Year
  Sex: Female
  Weight: 93 kg

DRUGS (17)
  1. AVASTIN [Suspect]
     Indication: COLORECTAL CANCER METASTATIC
     Dosage: 5 MG/KG, Q2W, INTRAVENOUS
     Route: 042
     Dates: start: 20050914, end: 20051206
  2. IRINOTECAN HCL [Suspect]
     Indication: COLORECTAL CANCER METASTATIC
     Dosage: 180 MG/M2, Q2W, INTRAVENOUS
     Route: 042
     Dates: start: 20050914, end: 20051206
  3. FLUOROURACIL [Suspect]
     Indication: COLORECTAL CANCER METASTATIC
     Dosage: 600 MG/M2, Q2W, INTRAVENOUS
     Route: 042
     Dates: start: 20050914, end: 20051206
  4. LEUCOVORIN CALCIUM [Suspect]
     Indication: COLORECTAL CANCER METASTATIC
  5. POTASSIUM CHLORIDE [Suspect]
     Dosage: 40 MEQ,
  6. EFFEXOR [Concomitant]
  7. COLACE (DOCUSATE SODIUM) [Concomitant]
  8. HYDRALAZINE HYDROCHLORIDE (HYDRALAZINE HYDROCHLORIDE) [Concomitant]
  9. LOPERAMIDE [Concomitant]
  10. PROCHLORPERAZINE [Concomitant]
  11. DILAUDID [Concomitant]
  12. SYNTHROID [Concomitant]
  13. ZOFRAN [Concomitant]
  14. HYDROMORPHONE HYDROCHLORIDE (HYDROMORPHONE HYDROCHLORIDE) [Concomitant]
  15. MILES MAGIC MOUTHWASH SUSPENSION (INGREDI (MOUTHWASH NOS) [Concomitant]
  16. LORAZEPAM [Concomitant]
  17. MAXERAN (METOCLOPRAMIDE HYDROCHLORIDE) [Concomitant]

REACTIONS (3)
  - ASTHENIA [None]
  - BLOOD POTASSIUM DECREASED [None]
  - NEUTROPENIA [None]
